FAERS Safety Report 9168477 (Version 1)
Quarter: 2013Q1

REPORT INFORMATION
  Report Type: Spontaneous
  Country: FR (occurrence: None)
  Receive Date: 20130307
  Receipt Date: 20130307
  Transmission Date: 20140127
  Serious: Yes (Other)
  Sender: FDA-Public Use
  Company Number: 2013-03536

PATIENT
  Age: 42 Year
  Sex: Female

DRUGS (1)
  1. CARBOPLATIN (WATSON LABORATORIES) (CARBOPLATIN) UNK, UNKUNK? [Suspect]
     Indication: BREAST CANCER
     Route: 042
     Dates: start: 20100816, end: 20100816

REACTIONS (6)
  - Dyspnoea [None]
  - Flushing [None]
  - Abdominal pain [None]
  - Infusion related reaction [None]
  - Blood pressure increased [None]
  - Heart rate increased [None]
